FAERS Safety Report 23006261 (Version 2)
Quarter: 2024Q1

REPORT INFORMATION
  Report Type: Spontaneous
  Country: JP (occurrence: JP)
  Receive Date: 20230929
  Receipt Date: 20240105
  Transmission Date: 20240410
  Serious: Yes (Hospitalization, Other)
  Sender: FDA-Public Use
  Company Number: JP-MLMSERVICE-20230913-4542101-1

PATIENT
  Age: 63 Year
  Sex: Male

DRUGS (3)
  1. CLOPIDOGREL [Suspect]
     Active Substance: CLOPIDOGREL BISULFATE
     Indication: Acute coronary syndrome
  2. ASPIRIN [Concomitant]
     Active Substance: ASPIRIN
     Indication: Acute coronary syndrome
  3. HEPARIN [Concomitant]
     Active Substance: HEPARIN SODIUM
     Indication: Acute coronary syndrome

REACTIONS (1)
  - Vascular stent thrombosis [Recovered/Resolved]
